FAERS Safety Report 6919978-7 (Version None)
Quarter: 2010Q3

REPORT INFORMATION
  Report Type: 
  Country: None (occurrence: None)
  Receive Date: 20100809
  Receipt Date: 20100722
  Transmission Date: 20110219
  Serious: Yes (Hospitalization)
  Sender: FDA-Public Use
  Company Number: DSA_43633_2010

PATIENT
  Age: 47 Year
  Sex: Female

DRUGS (2)
  1. WELLBUTRIN XL [Suspect]
     Indication: MAJOR DEPRESSION
     Dosage: (300 MG QD ORAL)
     Route: 048
     Dates: end: 20100101
  2. BUPROPION HCL [Suspect]
     Indication: MAJOR DEPRESSION
     Dosage: (150 MG QD ORAL)
     Route: 048
     Dates: start: 20080101

REACTIONS (3)
  - APATHY [None]
  - CONVULSION [None]
  - ROAD TRAFFIC ACCIDENT [None]
